FAERS Safety Report 10339566 (Version 2)
Quarter: 2014Q3

REPORT INFORMATION
  Report Type: Spontaneous
  Country: GR (occurrence: GR)
  Receive Date: 20140724
  Receipt Date: 20140724
  Transmission Date: 20150326
  Serious: Yes (Hospitalization)
  Sender: FDA-Public Use
  Company Number: GR-PFIZER INC-2014205268

PATIENT
  Age: 34 Year
  Sex: Male

DRUGS (1)
  1. SERTRALINE HCL [Suspect]
     Active Substance: SERTRALINE HYDROCHLORIDE
     Indication: PSYCHOTIC DISORDER
     Dosage: 100 MG, 2X/DAY (ONE 100 MG TABLET EVERY 12 HOURS)

REACTIONS (6)
  - Hallucination, auditory [Unknown]
  - Insomnia [Unknown]
  - Abnormal behaviour [Unknown]
  - Psychotic disorder [Unknown]
  - Delusional perception [Unknown]
  - Psychomotor hyperactivity [Unknown]
